FAERS Safety Report 9908446 (Version 1)
Quarter: 2014Q1

REPORT INFORMATION
  Report Type: Spontaneous
  Country: US (occurrence: None)
  Receive Date: 20140214
  Receipt Date: 20140214
  Transmission Date: 20141002
  Serious: Yes (Hospitalization)
  Sender: FDA-Public Use
  Company Number: None

PATIENT
  Age: 65 Year
  Sex: Female
  Weight: 127.9 kg

DRUGS (7)
  1. PLAVIX [Suspect]
     Indication: ATRIAL FIBRILLATION
     Dosage: CHRONIC
     Route: 048
  2. ASA [Suspect]
     Dosage: CHRONIC
     Route: 048
  3. ALEVE [Suspect]
  4. COREG [Concomitant]
  5. LASIX [Concomitant]
  6. MAG OX [Concomitant]
  7. KCL [Concomitant]

REACTIONS (6)
  - Iron deficiency anaemia [None]
  - Shock haemorrhagic [None]
  - Pulseless electrical activity [None]
  - Cardiac arrest [None]
  - Obstructive airways disorder [None]
  - Thrombosis [None]
